FAERS Safety Report 18640142 (Version 1)
Quarter: 2020Q4

REPORT INFORMATION
  Report Type: Spontaneous
  Country: CA (occurrence: CA)
  Receive Date: 20201220
  Receipt Date: 20201220
  Transmission Date: 20210114
  Serious: Yes (Other)
  Sender: FDA-Public Use
  Company Number: CA-BAXTER-2020BAX025770

PATIENT
  Age: 89 Year
  Sex: Male

DRUGS (2)
  1. CEFTRIAXONE INJECTION USP [Suspect]
     Active Substance: CEFTRIAXONE SODIUM
     Indication: BACTERAEMIA
     Route: 042
  2. STERILE WATER FOR IRRIGATION [Suspect]
     Active Substance: WATER
     Indication: PRODUCT USED FOR UNKNOWN INDICATION
     Route: 065

REACTIONS (2)
  - No reaction on previous exposure to drug [Unknown]
  - Infusion related reaction [Unknown]
